FAERS Safety Report 7064400-6 (Version None)
Quarter: 2010Q4

REPORT INFORMATION
  Report Type: 
  Country: None (occurrence: None)
  Receive Date: 20101027
  Receipt Date: 20101013
  Transmission Date: 20110411
  Serious: Yes (Hospitalization)
  Sender: FDA-Public Use
  Company Number: PHHY2010AU66470

PATIENT
  Sex: Female

DRUGS (4)
  1. CLOZARIL [Suspect]
     Indication: SCHIZOPHRENIA
     Dosage: 450 MG/DAY
     Dates: start: 20050606
  2. COUMADIN [Suspect]
  3. MULTI-VITAMINS [Concomitant]
     Indication: VITAMIN SUPPLEMENTATION
     Dosage: UNK
     Route: 048
  4. VENLAFAXINE [Concomitant]
     Dosage: 150 MG/DAY

REACTIONS (3)
  - NEUTROPHIL COUNT INCREASED [None]
  - POISONING DELIBERATE [None]
  - WHITE BLOOD CELL COUNT INCREASED [None]
